FAERS Safety Report 10242424 (Version 1)
Quarter: 2014Q2

REPORT INFORMATION
  Report Type: Spontaneous
  Country: BR (occurrence: BR)
  Receive Date: 20140617
  Receipt Date: 20140617
  Transmission Date: 20141212
  Serious: Yes (Hospitalization)
  Sender: FDA-Public Use
  Company Number: BR-DSJP-DSU-2014-111666

PATIENT
  Sex: 0

DRUGS (3)
  1. OLMETEC [Suspect]
     Indication: HYPERTENSION
     Dosage: UNK
     Route: 048
     Dates: start: 20120702, end: 2014
  2. NORVASC [Suspect]
     Indication: HYPERTENSION
     Dosage: UNK
     Dates: start: 20120702
  3. NORVASC [Suspect]
     Dosage: 10 MG, UNK
     Dates: start: 2014

REACTIONS (2)
  - Nephrolithiasis [Unknown]
  - Pneumonia [Unknown]
